FAERS Safety Report 25846030 (Version 1)
Quarter: 2025Q3

REPORT INFORMATION
  Report Type: Spontaneous
  Country: US (occurrence: None)
  Receive Date: 20250924
  Receipt Date: 20250924
  Transmission Date: 20251021
  Serious: Yes (unspecified)
  Sender: FDA-CTU
  Company Number: None

PATIENT
  Age: 25 Year
  Sex: Male
  Weight: 87.3 kg

DRUGS (9)
  1. PERAMPANEL [Suspect]
     Active Substance: PERAMPANEL
     Indication: Epilepsy
     Dosage: FREQUENCY : AT BEDTIME;?
     Route: 048
     Dates: start: 20250617, end: 20250716
  2. BRIVARACETAM [Concomitant]
     Active Substance: BRIVARACETAM
  3. CLOBAZAM [Concomitant]
     Active Substance: CLOBAZAM
  4. DIVALPROEX SODIUM [Concomitant]
     Active Substance: DIVALPROEX SODIUM
  5. LACOSAMIDE [Concomitant]
     Active Substance: LACOSAMIDE
  6. LEVOCARNITINE [Concomitant]
     Active Substance: LEVOCARNITINE
  7. POLYETHYLENE GLYCOL [Concomitant]
     Active Substance: POLYETHYLENE GLYCOL
  8. PYRIDOXINE [Concomitant]
     Active Substance: PYRIDOXINE
  9. ZONISAMIDE [Concomitant]
     Active Substance: ZONISAMIDE

REACTIONS (2)
  - Behaviour disorder [None]
  - Aggression [None]

NARRATIVE: CASE EVENT DATE: 20250710
